FAERS Safety Report 4740477-5 (Version None)
Quarter: 2005Q3

REPORT INFORMATION
  Report Type: 
  Country: None (occurrence: None)
  Receive Date: 20050810
  Receipt Date: 20050802
  Transmission Date: 20060218
  Serious: Yes (Life-Threatening)
  Sender: FDA-Public Use
  Company Number: US-BOEHRINGER INGELHEIM PHARMACEUTICALS, INC.-2005-DE-03002GD

PATIENT
  Age: 31 Year
  Sex: Female

DRUGS (10)
  1. IPRATROPIUM BROMIDE [Suspect]
     Indication: ASTHMA
     Route: 055
  2. IPRATROPIUM BROMIDE [Suspect]
     Indication: RESPIRATORY DISTRESS
     Dosage: 4 PUFFS EVERY 4 HOURS
     Route: 055
  3. IPRATROPIUM BROMIDE [Suspect]
     Indication: ASTHMA
     Route: 055
  4. ALBUTEROL SULFATE [Suspect]
     Dosage: 4 PUFFS EVERY 4 HOURS
     Route: 055
  5. ALBUTEROL SULFATE [Suspect]
     Indication: RESPIRATORY DISTRESS
  6. METHYLPREDNISOLONE 16MG TAB [Suspect]
     Indication: ASTHMA
     Route: 042
  7. METHYLPREDNISOLONE 16MG TAB [Suspect]
     Indication: RESPIRATORY DISTRESS
     Route: 042
  8. MONTELUKAST [Suspect]
     Indication: ASTHMA
  9. EPINEPHRINE [Suspect]
     Indication: ASTHMA
     Dosage: 1:1000 (0.3 CC)
     Route: 058
  10. MEDICINALPRODUCT NOT SPECIFIED BY SENDER [Concomitant]

REACTIONS (8)
  - ASTHMA [None]
  - CAESAREAN SECTION [None]
  - DRUG EXPOSURE DURING PREGNANCY [None]
  - HYPERCAPNIA [None]
  - PREMATURE BABY [None]
  - RESPIRATORY DISTRESS [None]
  - RESPIRATORY FAILURE [None]
  - STATUS ASTHMATICUS [None]
